FAERS Safety Report 8036596-0 (Version None)
Quarter: 2012Q1

REPORT INFORMATION
  Report Type: 
  Country: None (occurrence: None)
  Receive Date: 20120111
  Receipt Date: 20120102
  Transmission Date: 20120608
  Serious: Yes (Life-Threatening)
  Sender: FDA-Public Use
  Company Number: FR-PFIZER INC-2012005918

PATIENT
  Age: 75 Year
  Sex: Male

DRUGS (7)
  1. CORDARONE [Suspect]
     Indication: PRODUCT USED FOR UNKNOWN INDICATION
     Dosage: 200 MG, 1X/DAY
     Route: 048
  2. ASPIRIN [Concomitant]
     Dosage: 75 MG, 1X/DAY
  3. POTASSIUM CHLORIDE [Concomitant]
     Dosage: UNK
  4. ALLOPURINOL [Concomitant]
     Dosage: UNK, ONCE DAILY
  5. ERYTHROMYCIN [Suspect]
     Indication: PRODUCT USED FOR UNKNOWN INDICATION
     Dosage: 250 MG, 3X/DAY
     Route: 048
     Dates: start: 20111019
  6. FERROUS SULFATE TAB [Concomitant]
     Dosage: UNK, TWICE DAILY
  7. NEXIUM [Concomitant]
     Dosage: 40 MG, 1X/DAY

REACTIONS (1)
  - ELECTROCARDIOGRAM P WAVE ABNORMAL [None]
